FAERS Safety Report 6469403-8 (Version None)
Quarter: 2009Q4

REPORT INFORMATION
  Report Type: 
  Country: None (occurrence: None)
  Receive Date: 20091203
  Receipt Date: 20080206
  Transmission Date: 20100525
  Serious: Yes (Life-Threatening, Hospitalization)
  Sender: FDA-Public Use
  Company Number: CH-ELI_LILLY_AND_COMPANY-CH200709006736

PATIENT
  Age: 53 Year
  Sex: Male
  Weight: 100 kg

DRUGS (22)
  1. ZYPREXA [Suspect]
     Indication: SCHIZOPHRENIA
     Dosage: 5 MG, DAILY (1/D)
     Route: 048
     Dates: start: 20030101
  2. MORPHINE [Concomitant]
     Indication: PAIN IN EXTREMITY
     Dosage: 20 MG, 6 TIMES DAILY
     Route: 048
  3. DAFALGAN /SCH/ [Concomitant]
     Indication: PAIN IN EXTREMITY
     Dosage: 1 G, 4/D
     Route: 048
  4. BRUFEN /SCH/ [Concomitant]
     Indication: PAIN IN EXTREMITY
     Dosage: 400 MG, 3/D
     Route: 048
  5. INSULATARD HM [Concomitant]
     Indication: TYPE 1 DIABETES MELLITUS
     Dosage: 44 U, 2/D
     Route: 058
  6. INSULIN NOVORAPID [Concomitant]
     Indication: TYPE 1 DIABETES MELLITUS
     Dosage: 24 U, DAILY (1/D)
     Route: 058
  7. ENOXAPARIN SODIUM [Concomitant]
     Dosage: 100 MG, 2/D
     Route: 058
  8. METO ZEROK [Concomitant]
     Dosage: 150 MG, DAILY (1/D)
     Route: 048
  9. CIPROFLOXACIN [Concomitant]
     Dosage: 500 MG, DAILY (1/D)
     Route: 048
  10. SORTIS [Concomitant]
     Dosage: 40 MG, DAILY (1/D)
     Route: 048
  11. NIASPAN [Concomitant]
  12. NEXIUM [Concomitant]
     Dosage: 40 MG, DAILY (1/D)
     Route: 048
  13. PRADIF [Concomitant]
     Dosage: 400 MG, DAILY (1/D)
     Route: 048
  14. LISINOPRIL [Concomitant]
     Dosage: 5 MG, DAILY (1/D)
     Route: 048
  15. TORSEMIDE [Concomitant]
     Dosage: 10 MG, DAILY (1/D)
     Route: 048
  16. NITROGLYCERIN [Concomitant]
     Dosage: 10 MG, DAILY (1/D)
     Route: 062
  17. ASPIRIN [Concomitant]
     Dosage: 100 MG, DAILY (1/D)
     Route: 048
  18. PLAVIX [Concomitant]
     Dosage: 75 MG, DAILY (1/D)
     Route: 048
  19. IMPORTAL [Concomitant]
     Dosage: UNK UNK, AS NEEDED
  20. BIOFLORIN [Concomitant]
     Dosage: UNK UNK, AS NEEDED
     Route: 048
  21. LEXOTANIL [Concomitant]
     Dosage: 3 MG, AS NEEDED
     Route: 048
  22. DALMADORM [Concomitant]
     Dosage: 30 MG, DAILY (1/D)
     Route: 048

REACTIONS (4)
  - DIABETES MELLITUS [None]
  - HYPERTRIGLYCERIDAEMIA [None]
  - OBESITY [None]
  - PERIPHERAL ARTERIAL OCCLUSIVE DISEASE [None]
